FAERS Safety Report 4522327-5 (Version None)
Quarter: 2004Q4

REPORT INFORMATION
  Report Type: 
  Country: None (occurrence: None)
  Receive Date: 20041116
  Receipt Date: 20040806
  Transmission Date: 20050328
  Serious: No
  Sender: FDA-Public Use
  Company Number: S04-USA-05604-04

PATIENT
  Age: 87 Year
  Sex: Female
  Weight: 65.7716 kg

DRUGS (11)
  1. NAMENDA [Suspect]
     Indication: DEMENTIA
     Dosage: 10 MG BID PO
     Route: 048
     Dates: start: 20040527, end: 20040721
  2. NAMENDA [Suspect]
     Indication: DEMENTIA
     Dosage: 5 MG QD PO
     Route: 048
     Dates: start: 20040506, end: 20040512
  3. NAMENDA [Suspect]
     Indication: DEMENTIA
     Dosage: 5 MG BID PO
     Route: 048
     Dates: start: 20040513, end: 20040519
  4. NAMENDA [Suspect]
     Indication: DEMENTIA
     Dosage: 15 MG QD PO
     Route: 048
     Dates: start: 20040520, end: 20040526
  5. RISPERDAL [Concomitant]
  6. NAPROXEN [Concomitant]
  7. B12 [Concomitant]
  8. ARICEPT [Concomitant]
  9. ASA-CHEWABLE [Concomitant]
  10. ACTONEL [Concomitant]
  11. OYST-CAL-D [Concomitant]

REACTIONS (2)
  - AGITATION [None]
  - WEIGHT DECREASED [None]
